FAERS Safety Report 9636169 (Version 3)
Quarter: 2014Q1

REPORT INFORMATION
  Report Type: Spontaneous
  Country: US (occurrence: US)
  Receive Date: 20131021
  Receipt Date: 20140314
  Transmission Date: 20141002
  Serious: Yes (Other)
  Sender: FDA-Public Use
  Company Number: US-BAYER-2013-126770

PATIENT
  Age: 29 Year
  Sex: Female
  Weight: 50 kg

DRUGS (1)
  1. MIRENA [Suspect]
     Indication: CONTRACEPTION
     Dosage: 20 MCG/24HR, CONT
     Route: 015
     Dates: start: 20090521, end: 20100504

REACTIONS (7)
  - Embedded device [Recovered/Resolved]
  - Device issue [None]
  - Pain [Recovered/Resolved]
  - Injury [Recovered/Resolved]
  - Device difficult to use [None]
  - Menorrhagia [None]
  - Emotional distress [None]
